FAERS Safety Report 5692738-3 (Version None)
Quarter: 2008Q2

REPORT INFORMATION
  Report Type: 
  Country: None (occurrence: None)
  Receive Date: 20080401
  Receipt Date: 20080325
  Transmission Date: 20081010
  Serious: Yes (Other)
  Sender: FDA-Public Use
  Company Number: 08H-163-0314062-00

PATIENT
  Age: 65 Year
  Sex: Male

DRUGS (2)
  1. AMIODARONE HCL [Suspect]
     Indication: TACHYCARDIA
  2. AMIODARONE HCL [Suspect]
     Indication: ATRIAL FIBRILLATION
     Dosage: ORAL
     Route: 048

REACTIONS (3)
  - ATRIAL FLUTTER [None]
  - HYPERTHYROIDISM [None]
  - VENTRICULAR TACHYCARDIA [None]
